FAERS Safety Report 5403185-3 (Version None)
Quarter: 2007Q3

REPORT INFORMATION
  Report Type: 
  Country: None (occurrence: None)
  Receive Date: 20070801
  Receipt Date: 20070724
  Transmission Date: 20080115
  Serious: Yes (Death, Hospitalization)
  Sender: FDA-Public Use
  Company Number: US-PFIZER INC-2006110273

PATIENT
  Age: 77 Year
  Sex: Female

DRUGS (1)
  1. PHENYTOIN [Suspect]
     Indication: CONVULSION
     Route: 050
     Dates: start: 20040728, end: 20040731

REACTIONS (3)
  - RASH [None]
  - SKIN LESION [None]
  - SKIN REACTION [None]
